FAERS Safety Report 9217376 (Version 1)
Quarter: 2013Q2

REPORT INFORMATION
  Report Type: Spontaneous
  Country: US (occurrence: None)
  Receive Date: 20130405
  Receipt Date: 20130405
  Transmission Date: 20140414
  Serious: Yes (Hospitalization)
  Sender: FDA-Public Use
  Company Number: None

PATIENT
  Age: 46 Year
  Sex: Male
  Weight: 101.8 kg

DRUGS (1)
  1. BUPROPION [Suspect]
     Route: 048
     Dates: start: 20120802

REACTIONS (4)
  - Angioedema [None]
  - Urticaria [None]
  - Drug hypersensitivity [None]
  - Pruritus [None]
